FAERS Safety Report 16544172 (Version 2)
Quarter: 2020Q4

REPORT INFORMATION
  Report Type: Spontaneous
  Country: US (occurrence: US)
  Receive Date: 20190709
  Receipt Date: 20201028
  Transmission Date: 20210113
  Serious: No
  Sender: FDA-Public Use
  Company Number: US-PFIZER INC-2019288121

PATIENT
  Age: 65 Year
  Sex: Female

DRUGS (1)
  1. EUCRISA [Suspect]
     Active Substance: CRISABOROLE
     Indication: DERMATITIS
     Dosage: APPLY TO AFFECTED AREA(S) TWICE A DAY AS NEEDED
     Route: 061

REACTIONS (3)
  - Product use in unapproved indication [Unknown]
  - Nail disorder [Unknown]
  - Off label use [Unknown]
